FAERS Safety Report 18223720 (Version 3)
Quarter: 2020Q4

REPORT INFORMATION
  Report Type: Other
  Country: DE (occurrence: DE)
  Receive Date: 20200902
  Receipt Date: 20201202
  Transmission Date: 20210113
  Serious: Yes (Hospitalization)
  Sender: FDA-Public Use
  Company Number: DE-ROCHE-2666072

PATIENT
  Age: 55 Year
  Sex: Male
  Weight: 100 kg

DRUGS (14)
  1. OCRELIZUMAB. [Suspect]
     Active Substance: OCRELIZUMAB
     Indication: PRIMARY PROGRESSIVE MULTIPLE SCLEROSIS
     Route: 042
     Dates: start: 20190212
  2. FOLSAN [Concomitant]
     Active Substance: FOLIC ACID
     Indication: PROPHYLAXIS
     Route: 048
  3. ZOPICLON [Concomitant]
     Active Substance: ZOPICLONE
     Indication: SLEEP DISORDER
     Dosage: DEFINITION OF THE INTERVAL: AS REQUIRED
     Route: 048
     Dates: start: 20171128
  4. AERIUS [Concomitant]
     Route: 048
     Dates: start: 20190211, end: 20190213
  5. PREDNISOLON [Concomitant]
     Active Substance: PREDNISOLONE
     Route: 042
     Dates: start: 20190212, end: 20190212
  6. FERRO SANOL [Concomitant]
     Active Substance: FERROUS GLYCINE SULFATE
     Indication: PROPHYLAXIS
     Route: 048
     Dates: start: 201902
  7. PREDNISOLON [Concomitant]
     Active Substance: PREDNISOLONE
     Route: 042
     Dates: start: 20190227, end: 20190227
  8. AERIUS [Concomitant]
     Route: 048
     Dates: start: 20190226, end: 20190228
  9. ZINK VERLA [Concomitant]
     Active Substance: ZINC GLUCONATE
     Indication: PROPHYLAXIS
     Route: 048
     Dates: start: 201902
  10. RANITIDIN [Concomitant]
     Active Substance: RANITIDINE HYDROCHLORIDE
     Route: 048
     Dates: start: 20190211, end: 20190213
  11. SIRDALUD [Concomitant]
     Active Substance: TIZANIDINE
     Indication: MUSCLE SPASTICITY
     Route: 048
     Dates: start: 20180718
  12. DEKRISTOL [Concomitant]
     Active Substance: CHOLECALCIFEROL
     Indication: VITAMIN D DEFICIENCY
     Route: 048
     Dates: start: 20140130
  13. RANITIDIN [Concomitant]
     Active Substance: RANITIDINE HYDROCHLORIDE
     Route: 048
     Dates: start: 20190226, end: 20190228
  14. ISONIAZID. [Concomitant]
     Active Substance: ISONIAZID
     Indication: LATENT TUBERCULOSIS
     Route: 048
     Dates: start: 20181114

REACTIONS (4)
  - Impaired healing [Unknown]
  - Abscess limb [Unknown]
  - Bladder catheterisation [Unknown]
  - Urinary tract infection [Unknown]

NARRATIVE: CASE EVENT DATE: 20190709
